FAERS Safety Report 7297132-X (Version None)
Quarter: 2011Q1

REPORT INFORMATION
  Report Type: 
  Country: None (occurrence: None)
  Receive Date: 20110216
  Receipt Date: 20110209
  Transmission Date: 20110831
  Serious: Yes (Other)
  Sender: FDA-Public Use
  Company Number: US-PFIZER INC-2010038948

PATIENT
  Sex: Female
  Weight: 57 kg

DRUGS (7)
  1. ZOLOFT [Suspect]
     Indication: DEPRESSION
     Dosage: 200 MG, 1X/DAY
     Dates: start: 20090501, end: 20100317
  2. COD-LIVER OIL [Concomitant]
     Dosage: UNK
  3. GLUCOSAMINE [Concomitant]
     Dosage: UNK
  4. PRISTIQ [Suspect]
     Indication: DEPRESSION
     Dosage: 50 MG, 1X/DAY
     Route: 048
     Dates: start: 20100317
  5. ST. JOHN'S WORT [Concomitant]
     Dosage: UNK
  6. VITAMIN A [Concomitant]
     Dosage: 3000 IU, UNK
  7. CALCIUM [Concomitant]
     Dosage: UNK

REACTIONS (8)
  - HEADACHE [None]
  - DEPRESSION [None]
  - NIGHTMARE [None]
  - FEELING ABNORMAL [None]
  - CRYING [None]
  - CHILLS [None]
  - DRUG INEFFECTIVE [None]
  - INFLUENZA LIKE ILLNESS [None]
